FAERS Safety Report 5204598-5 (Version None)
Quarter: 2007Q1

REPORT INFORMATION
  Report Type: 
  Country: None (occurrence: None)
  Receive Date: 20070110
  Receipt Date: 20060519
  Transmission Date: 20070707
  Serious: No
  Sender: FDA-Public Use
  Company Number: US-BRISTOL-MYERS SQUIBB COMPANY-13383948

PATIENT
  Sex: Female
  Weight: 51 kg

DRUGS (5)
  1. ABILIFY [Suspect]
     Indication: BIPOLAR DISORDER
     Dates: start: 20060401, end: 20060501
  2. ZOLOFT [Concomitant]
  3. LAMICTAL [Concomitant]
  4. DETROL [Concomitant]
  5. DECADRON [Concomitant]

REACTIONS (1)
  - WEIGHT INCREASED [None]
